FAERS Safety Report 17697434 (Version 1)
Quarter: 2020Q2

REPORT INFORMATION
  Report Type: Spontaneous
  Country: DE (occurrence: DE)
  Receive Date: 20200423
  Receipt Date: 20200423
  Transmission Date: 20200714
  Serious: Yes (Other)
  Sender: FDA-Public Use
  Company Number: DE-ACCORD-179243

PATIENT
  Age: 73 Year
  Sex: Female

DRUGS (8)
  1. MONO-EMBOLEX MULTI [Suspect]
     Active Substance: CERTOPARIN SODIUM
     Indication: ATRIAL FIBRILLATION
     Dosage: 1 DF, QD
     Dates: start: 20101001, end: 20101008
  2. MONO-EMBOLEX MULTI [Suspect]
     Active Substance: CERTOPARIN SODIUM
     Indication: ATRIAL FIBRILLATION
     Dosage: 1 DF, QD
     Dates: start: 20101105, end: 20101110
  3. MONO-EMBOLEX MULTI [Suspect]
     Active Substance: CERTOPARIN SODIUM
     Indication: ATRIAL FIBRILLATION
     Dosage: 1 DF, QD
     Dates: start: 2013
  4. CIPROFLOXACIN. [Suspect]
     Active Substance: CIPROFLOXACIN
     Indication: PRODUCT USED FOR UNKNOWN INDICATION
     Route: 065
  5. MONO-EMBOLEX MULTI [Suspect]
     Active Substance: CERTOPARIN SODIUM
     Indication: ATRIAL FIBRILLATION
     Dosage: 1 DF, QD
     Dates: start: 20101024, end: 20101031
  6. PRASUGREL. [Suspect]
     Active Substance: PRASUGREL
     Indication: PRODUCT USED FOR UNKNOWN INDICATION
     Route: 065
  7. MONO-EMBOLEX MULTI [Suspect]
     Active Substance: CERTOPARIN SODIUM
     Indication: ATRIAL FIBRILLATION
     Dosage: DECRASED TO 3000 IU
  8. ACETYLSALICYLIC ACID [Suspect]
     Active Substance: ASPIRIN
     Indication: ISCHAEMIC HEART DISEASE PROPHYLAXIS
     Dosage: UNK
     Route: 065
     Dates: end: 2013

REACTIONS (13)
  - Activated partial thromboplastin time prolonged [Unknown]
  - Thrombosis [Unknown]
  - Eye haemorrhage [Unknown]
  - Coagulation factor V level decreased [Unknown]
  - Laboratory test abnormal [Unknown]
  - Urinary bladder haemorrhage [Unknown]
  - Haematoma [Unknown]
  - Prothrombin time prolonged [Unknown]
  - Gingival bleeding [Unknown]
  - Muscle rupture [Unknown]
  - Factor V inhibition [Unknown]
  - Epistaxis [Unknown]
  - Myocardial infarction [Unknown]

NARRATIVE: CASE EVENT DATE: 20101117
